FAERS Safety Report 4368374-8 (Version None)
Quarter: 2004Q2

REPORT INFORMATION
  Report Type: 
  Country: None (occurrence: None)
  Receive Date: 20040528
  Receipt Date: 20040525
  Transmission Date: 20050107
  Serious: Yes (Hospitalization)
  Sender: FDA-Public Use
  Company Number: 200411769GDS

PATIENT
  Age: 68 Year
  Sex: Male
  Weight: 66.8 kg

DRUGS (2)
  1. ASPIRIN [Suspect]
  2. HEPARIN [Suspect]

REACTIONS (12)
  - ANGINA PECTORIS [None]
  - BACK PAIN [None]
  - CARDIAC MURMUR [None]
  - COMPUTERISED TOMOGRAM ABNORMAL [None]
  - DYSPNOEA EXERTIONAL [None]
  - GASTRIC ULCER [None]
  - HAEMATEMESIS [None]
  - HAEMATOMA [None]
  - LACERATION [None]
  - OESOPHAGEAL DISORDER [None]
  - PROCEDURAL COMPLICATION [None]
  - VENTRICULAR FIBRILLATION [None]
